FAERS Safety Report 5032531-8 (Version None)
Quarter: 2006Q2

REPORT INFORMATION
  Report Type: 
  Country: None (occurrence: None)
  Receive Date: 20060515
  Receipt Date: 20060116
  Transmission Date: 20061013
  Serious: No
  Sender: FDA-Public Use
  Company Number: S06-USA-00234-02

PATIENT

DRUGS (2)
  1. NAMENDA [Suspect]
     Dosage: 5 MG QD PO
     Route: 048
  2. NAMENDA [Suspect]
     Dosage: 10 MG QD PO
     Route: 048

REACTIONS (1)
  - GAIT DISTURBANCE [None]
